FAERS Safety Report 23980480 (Version 2)
Quarter: 2024Q2

REPORT INFORMATION
  Report Type: Spontaneous
  Country: US (occurrence: US)
  Receive Date: 20240617
  Receipt Date: 20240617
  Transmission Date: 20240716
  Serious: Yes (Other)
  Sender: FDA-Public Use
  Company Number: US-SERB S.A.S.-2158192

PATIENT
  Age: 48 Year
  Sex: Female

DRUGS (3)
  1. VISTOGARD [Suspect]
     Active Substance: URIDINE TRIACETATE
     Indication: Toxicity to various agents
  2. VISTOGARD [Suspect]
     Active Substance: URIDINE TRIACETATE
     Indication: Chemotherapy toxicity attenuation
  3. CAPECITABINE [Suspect]
     Active Substance: CAPECITABINE

REACTIONS (7)
  - Nausea [Unknown]
  - Hypokalaemia [Unknown]
  - Adverse event [Unknown]
  - Mucosal inflammation [Unknown]
  - Vomiting [Unknown]
  - Dehydration [Unknown]
  - Diarrhoea [Unknown]
